FAERS Safety Report 17756418 (Version 1)
Quarter: 2020Q2

REPORT INFORMATION
  Report Type: Spontaneous
  Country: FR (occurrence: FR)
  Receive Date: 20200507
  Receipt Date: 20200507
  Transmission Date: 20200714
  Serious: Yes (Other)
  Sender: FDA-Public Use
  Company Number: FR-CADILA HEALTHCARE LIMITED-FR-ZYDUS-022466

PATIENT

DRUGS (6)
  1. VENLAFAXINE [Suspect]
     Active Substance: VENLAFAXINE HYDROCHLORIDE
     Indication: DEPRESSION
     Dosage: UNKNOWN
     Route: 048
     Dates: start: 20170104, end: 20170111
  2. ESCITALOPRAM [Suspect]
     Active Substance: ESCITALOPRAM OXALATE
     Indication: DEPRESSION
     Dosage: 10 MILLIGRAM,(INTERVAL :1 DAYS)
     Route: 048
     Dates: start: 20130101, end: 20170104
  3. TRANXENE [Suspect]
     Active Substance: CLORAZEPATE DIPOTASSIUM
     Indication: ANXIETY
     Dosage: 40 MILLIGRAM,(INTERVAL :1 DAYS)
     Route: 048
     Dates: start: 20170104, end: 20170111
  4. LOXAPAC [Concomitant]
     Active Substance: LOXAPINE
     Indication: AGITATION
     Dosage: 20 MILLIGRAM,IN TOTAL,(INTERVAL :1 TOTAL)
     Route: 048
     Dates: start: 20170109, end: 20170109
  5. BROMAZEPAM [Concomitant]
     Active Substance: BROMAZEPAM
     Indication: ANXIETY
     Dosage: 12 MILLIGRAM,(INTERVAL :1 DAYS)
     Route: 048
     Dates: start: 20130101, end: 20170104
  6. DEBRIDAT [Concomitant]
     Active Substance: TRIMEBUTINE MALEATE
     Indication: GASTROINTESTINAL DISORDER
     Dosage: 2 DOSAGE FORM,GRANULES FOR ORAL SUSPENSION IN SACHETS,(INTERVAL :1 DAYS)
     Route: 048
     Dates: start: 20170104

REACTIONS (1)
  - Neutropenia [Not Recovered/Not Resolved]

NARRATIVE: CASE EVENT DATE: 201701
